FAERS Safety Report 21351366 (Version 1)
Quarter: 2022Q3

REPORT INFORMATION
  Report Type: Spontaneous
  Country: CH (occurrence: CH)
  Receive Date: 20220919
  Receipt Date: 20220919
  Transmission Date: 20221027
  Serious: Yes (Other)
  Sender: FDA-Public Use
  Company Number: None

PATIENT
  Age: 32 Year
  Sex: Male

DRUGS (12)
  1. CLOZAPINE [Suspect]
     Active Substance: CLOZAPINE
     Indication: Schizophrenia
     Dosage: LEPONEX 100 MG (CLOZAPINE) SINCE AT LEAST 05-MAR-2021 TAKEN ORALLY 2-2-2-0 UNTIL 06-OCT-2021
     Route: 048
     Dates: start: 20210305, end: 20211006
  2. CLOZAPINE [Suspect]
     Active Substance: CLOZAPINE
     Dosage: 300 MILLIGRAM, QD LEPONEX SINCE AT LEAST 05-MAR-2021 TAKEN ORALLY 2-2-2-0 UNTIL 06-OCT-2021
     Route: 048
     Dates: start: 20211007, end: 20211115
  3. CLOZAPINE [Suspect]
     Active Substance: CLOZAPINE
     Dosage: 500 MILLIGRAM, QD LEPONEX SINCE AT LEAST 05-MAR-2021 TAKEN ORALLY 2-2-2-0 UNTIL 06-OCT-2021
     Route: 048
     Dates: start: 20211116
  4. CLOZAPINE [Suspect]
     Active Substance: CLOZAPINE
     Indication: Schizophrenia
     Dosage: LEPONEX 25 MG CLOZAPINE SINCE AT LEAST 05-MAR-2021 TAKEN ORALLY 0-0-1-0, UNTIL FURTHER NOTICE
     Route: 048
     Dates: start: 20210305
  5. ABILIFY [Concomitant]
     Active Substance: ARIPIPRAZOLE
     Dosage: 5 MILLIGRAM, QD ABILIFY TABL 5 MG (ARIPIPRAZOL)  1-0-0-0
     Route: 048
  6. CIPRALEX [Concomitant]
     Active Substance: ESCITALOPRAM OXALATE
     Dosage: 10 MILLIGRAM, QD CIPRALEX FILMTABL 10 MG (ESCITALOPRAM)  1-0-0-0
     Route: 048
  7. PANTOPRAZOLE SODIUM [Concomitant]
     Active Substance: PANTOPRAZOLE SODIUM
     Dosage: 20 MILLIGRAM, PRN PANTOPRAZOL SANDOZ FILMTABL 20 MG (PANTOPRAZOL) 0-0-0-1 PRN
     Route: 048
  8. VALVERDE ENTSPANNUNGS [Concomitant]
     Indication: Anxiety
     Dosage: 3 DOSAGE FORM QD, 20 TABLETS (COMBINED PREPARATION) MAXIMUM PER 24 HOURS: 3 TABLETS
     Route: 065
  9. XANAX [Concomitant]
     Active Substance: ALPRAZOLAM
     Indication: Anxiety
     Dosage: 3 DOSAGE FORM, QD MAXIMUM PER 24 HOURS: 3 TABLETS;
     Route: 065
  10. QUETIAPINE [Concomitant]
     Active Substance: QUETIAPINE
     Indication: Anxiety
     Dosage: 3 DOSAGE FORM, QD MAXIMUM PER 24 HOURS: 3 TABLETS
     Route: 065
  11. ZOLPIDEM TARTRATE [Concomitant]
     Active Substance: ZOLPIDEM TARTRATE
     Indication: Insomnia
     Dosage: 1 DOSAGE FORM, QD MAXIMUM PER 24 HOURS: 1 TABLET
     Route: 065
  12. METAMIZOLE [Concomitant]
     Active Substance: METAMIZOLE
     Indication: Pain
     Dosage: 4 DOSAGE FORM, QD MAXIMUM PER 24 HOURS: 4 TABLETS
     Route: 065

REACTIONS (3)
  - Rhabdomyolysis [Not Recovered/Not Resolved]
  - Blood creatine phosphokinase increased [Not Recovered/Not Resolved]
  - Antipsychotic drug level increased [Unknown]

NARRATIVE: CASE EVENT DATE: 20211001
